FAERS Safety Report 6746073-2 (Version None)
Quarter: 2010Q2

REPORT INFORMATION
  Report Type: 
  Country: None (occurrence: None)
  Receive Date: 20100528
  Receipt Date: 20100515
  Transmission Date: 20101027
  Serious: Yes (Other)
  Sender: FDA-Public Use
  Company Number: US-JNJFOC-20100508493

PATIENT
  Sex: Female

DRUGS (3)
  1. CHILDREN'S TYLENOL SUSPENSION [Suspect]
     Route: 065
  2. CHILDREN'S TYLENOL SUSPENSION [Suspect]
     Indication: DRUG USE FOR UNKNOWN INDICATION
     Route: 065
  3. ASPIRIN [Suspect]
     Indication: DRUG USE FOR UNKNOWN INDICATION

REACTIONS (4)
  - HAEMORRHAGIC DIATHESIS [None]
  - PRODUCT QUALITY ISSUE [None]
  - SKIN ATROPHY [None]
  - SKIN DISCOLOURATION [None]
